FAERS Safety Report 18792728 (Version 7)
Quarter: 2021Q4

REPORT INFORMATION
  Report Type: Spontaneous
  Country: US (occurrence: US)
  Receive Date: 20210127
  Receipt Date: 20211116
  Transmission Date: 20220303
  Serious: Yes (Hospitalization, Other)
  Sender: FDA-Public Use
  Company Number: US-ALLERGAN-2034721US

PATIENT
  Sex: Female

DRUGS (4)
  1. ALORA [Suspect]
     Active Substance: ESTRADIOL
     Indication: Menopause
     Dosage: 1 DF, BI-WEEKLY
     Route: 062
  2. ALORA [Suspect]
     Active Substance: ESTRADIOL
     Indication: Hormone replacement therapy
  3. ALORA [Suspect]
     Active Substance: ESTRADIOL
     Indication: Menopause
     Dosage: 1 DF, BI-WEEKLY
     Route: 062
  4. ALORA [Suspect]
     Active Substance: ESTRADIOL
     Indication: Hormone replacement therapy

REACTIONS (20)
  - Hospitalisation [Unknown]
  - Breast neoplasm [Unknown]
  - Suicidal ideation [Unknown]
  - Feeling jittery [Recovering/Resolving]
  - Skin injury [Unknown]
  - Abdominal discomfort [Unknown]
  - Eating disorder [Unknown]
  - Ophthalmic migraine [Not Recovered/Not Resolved]
  - Insomnia [Not Recovered/Not Resolved]
  - Drug ineffective [Unknown]
  - Dizziness [Not Recovered/Not Resolved]
  - Vomiting [Recovered/Resolved]
  - Depression [Not Recovered/Not Resolved]
  - Vision blurred [Recovered/Resolved]
  - Product packaging issue [Unknown]
  - Product adhesion issue [Unknown]
  - Product availability issue [Unknown]
  - Therapeutic product effect decreased [Unknown]
  - Product quality issue [Unknown]
  - Nausea [Unknown]

NARRATIVE: CASE EVENT DATE: 20120101
